FAERS Safety Report 21090130 (Version 2)
Quarter: 2022Q3

REPORT INFORMATION
  Report Type: Report from Study
  Country: KR (occurrence: KR)
  Receive Date: 20220715
  Receipt Date: 20220908
  Transmission Date: 20221027
  Serious: Yes (Death, Other)
  Sender: FDA-Public Use
  Company Number: KR-TAKEDA-2022TUS047452

PATIENT
  Age: 76 Year
  Sex: Male
  Weight: 56 kg

DRUGS (15)
  1. BRIGATINIB [Suspect]
     Active Substance: BRIGATINIB
     Indication: Non-small cell lung cancer
     Dosage: 90 MILLIGRAM, QD
     Route: 048
     Dates: start: 20220705, end: 20220709
  2. CETAMADOL [Concomitant]
     Indication: Lumbar radiculopathy
     Dosage: UNK
     Route: 048
     Dates: start: 20220526, end: 20220709
  3. NALOXONE HYDROCHLORIDE\OXYCODONE HYDROCHLORIDE [Concomitant]
     Active Substance: NALOXONE HYDROCHLORIDE\OXYCODONE HYDROCHLORIDE
     Indication: Lumbar radiculopathy
     Dosage: UNK
     Route: 048
     Dates: start: 20220619, end: 20220709
  4. DOXOFYLLINE [Concomitant]
     Active Substance: DOXOFYLLINE
     Indication: Asthma
     Dosage: UNK
     Route: 048
     Dates: start: 20220526, end: 20220709
  5. GLIATAMINE [Concomitant]
     Indication: Hyperlipidaemia
     Dosage: UNK
     Route: 048
     Dates: start: 2017, end: 20220709
  6. ASPIRIN [Concomitant]
     Active Substance: ASPIRIN
     Indication: Angina pectoris
     Dosage: UNK
     Route: 048
     Dates: end: 20220709
  7. ROVETIN [Concomitant]
     Indication: Hyperlipidaemia
     Dosage: 10 MILLIGRAM, QD
     Route: 048
     Dates: start: 2017, end: 20220709
  8. DIABEX [Concomitant]
     Active Substance: METFORMIN HYDROCHLORIDE
     Indication: Diabetes mellitus
     Dosage: 250 MILLIGRAM, BID
     Route: 048
     Dates: end: 20220709
  9. JANUMET [Concomitant]
     Active Substance: METFORMIN HYDROCHLORIDE\SITAGLIPTIN PHOSPHATE
     Indication: Diabetes mellitus
     Dosage: UNK
     Route: 048
     Dates: start: 2013, end: 20220709
  10. LOBEGLITAZONE SULFATE [Concomitant]
     Active Substance: LOBEGLITAZONE SULFATE
     Indication: Diabetes mellitus
     Dosage: 0.5 MILLIGRAM, QD
     Route: 048
     Dates: start: 2015, end: 20220709
  11. EPINEPHRINE ASCORBATE [Concomitant]
     Indication: Cardiac arrest
     Dosage: 8 MILLIGRAM, QD
     Route: 042
     Dates: start: 20220709, end: 20220709
  12. CORDARONE [Concomitant]
     Active Substance: AMIODARONE HYDROCHLORIDE
     Indication: Cardiac arrest
     Dosage: 450 MILLIGRAM, QD
     Route: 042
     Dates: start: 20220709, end: 20220709
  13. METRONIDAZOLE [Concomitant]
     Active Substance: METRONIDAZOLE
     Indication: Prophylaxis
     Dosage: 500 MILLIGRAM, TID
     Route: 042
     Dates: start: 20220709, end: 20220709
  14. Maxipime boryung [Concomitant]
     Indication: Prophylaxis
     Dosage: 2 GRAM, TID
     Route: 042
     Dates: start: 20220709, end: 20220709
  15. GABAPENTIN [Concomitant]
     Active Substance: GABAPENTIN
     Indication: Lumbar radiculopathy
     Dosage: UNK
     Route: 048
     Dates: start: 20220513, end: 20220709

REACTIONS (1)
  - Cardiac arrest [Fatal]

NARRATIVE: CASE EVENT DATE: 20220709
